FAERS Safety Report 11400756 (Version 1)
Quarter: 2015Q3

REPORT INFORMATION
  Report Type: Spontaneous
  Country: US (occurrence: US)
  Receive Date: 20150820
  Receipt Date: 20150820
  Transmission Date: 20151125
  Serious: No
  Sender: FDA-Public Use
  Company Number: US-BAYER-2015-401650

PATIENT
  Age: 67 Year
  Sex: Female
  Weight: 69.39 kg

DRUGS (3)
  1. MULTIVITAMIN [Concomitant]
     Active Substance: VITAMINS
  2. CLARITIN-D 24 HOUR [Suspect]
     Active Substance: LORATADINE\PSEUDOEPHEDRINE SULFATE
     Indication: SINUSITIS
     Dosage: 1 DF, QD
     Route: 048
     Dates: start: 20150811
  3. CLARITIN REDITABS [Suspect]
     Active Substance: LORATADINE
     Indication: SINUSITIS
     Dosage: 1 DF, Q8HR
     Route: 048
     Dates: start: 201507

REACTIONS (5)
  - Product use issue [Unknown]
  - Off label use [Unknown]
  - Lacrimation increased [Not Recovered/Not Resolved]
  - Drug ineffective for unapproved indication [Unknown]
  - Rhinorrhoea [Not Recovered/Not Resolved]

NARRATIVE: CASE EVENT DATE: 20150811
